FAERS Safety Report 23752584 (Version 1)
Quarter: 2024Q2

REPORT INFORMATION
  Report Type: Spontaneous
  Country: CH (occurrence: CH)
  Receive Date: 20240417
  Receipt Date: 20240417
  Transmission Date: 20240716
  Serious: Yes (Hospitalization, Other)
  Sender: FDA-Public Use
  Company Number: None

PATIENT
  Age: 83 Year
  Sex: Male

DRUGS (17)
  1. CEFTAZIDIME [Suspect]
     Active Substance: CEFTAZIDIME
     Indication: Bacterial pyelonephritis
     Dosage: 2 G, QD
     Route: 042
     Dates: start: 20240301, end: 20240312
  2. PIPERACILLIN SODIUM\TAZOBACTAM SODIUM [Suspect]
     Active Substance: PIPERACILLIN SODIUM\TAZOBACTAM SODIUM
     Indication: Bacterial pyelonephritis
     Dosage: 4.5 G, TID
     Route: 042
     Dates: start: 20240228, end: 20240229
  3. COLCHICINE [Suspect]
     Active Substance: COLCHICINE
     Indication: Gouty arthritis
     Dosage: 0.5 MG, QD
     Route: 048
     Dates: start: 20240227, end: 20240229
  4. IRBESARTAN [Suspect]
     Active Substance: IRBESARTAN
     Dosage: 150 MG, QD
     Dates: start: 20240307, end: 20240307
  5. IRBESARTAN [Suspect]
     Active Substance: IRBESARTAN
     Dosage: 150 MG, QD
     Dates: start: 20240309, end: 20240309
  6. IRBESARTAN [Suspect]
     Active Substance: IRBESARTAN
     Dosage: 150 MG, QD
     Dates: start: 20240312, end: 20240312
  7. IRBESARTAN [Suspect]
     Active Substance: IRBESARTAN
     Dosage: 75 MG, QD
     Dates: start: 20240313, end: 20240314
  8. IRBESARTAN [Suspect]
     Active Substance: IRBESARTAN
     Dosage: 150 MG, QD
     Dates: start: 20240315, end: 20240315
  9. ENOXAPARIN SODIUM [Concomitant]
     Active Substance: ENOXAPARIN SODIUM
     Dosage: UNK
  10. FOLIC ACID [Concomitant]
     Active Substance: FOLIC ACID
     Dosage: UNK
  11. CALCIUM\CHOLECALCIFEROL [Concomitant]
     Active Substance: CALCIUM\CHOLECALCIFEROL
     Dosage: UNK
  12. ESOMEPRAZOLE MAGNESIUM [Concomitant]
     Active Substance: ESOMEPRAZOLE MAGNESIUM
     Dosage: UNK
  13. FIG FRUIT OIL\SORBITOL [Concomitant]
     Active Substance: FIG FRUIT OIL\SORBITOL
     Dosage: UNK
  14. URISPAS [Concomitant]
     Active Substance: FLAVOXATE HYDROCHLORIDE
     Dosage: UNK
  15. METOPROLOL FUMARATE [Concomitant]
     Active Substance: METOPROLOL FUMARATE
     Dosage: UNK
  16. PREGABALIN [Concomitant]
     Active Substance: PREGABALIN
     Dosage: UNK
  17. TORSEMIDE [Concomitant]
     Active Substance: TORSEMIDE
     Dosage: UNK

REACTIONS (3)
  - Acute kidney injury [Recovering/Resolving]
  - Acute kidney injury [Not Recovered/Not Resolved]
  - Renal tubular necrosis [Not Recovered/Not Resolved]

NARRATIVE: CASE EVENT DATE: 20240229
